FAERS Safety Report 8066810-7 (Version None)
Quarter: 2012Q1

REPORT INFORMATION
  Report Type: 
  Country: None (occurrence: None)
  Receive Date: 20120124
  Receipt Date: 20120115
  Transmission Date: 20120608
  Serious: Yes (Other)
  Sender: FDA-Public Use
  Company Number: PHHY2012US004098

PATIENT
  Age: 21 Year
  Sex: Female

DRUGS (1)
  1. OXCARBAZEPINE [Suspect]
     Dosage: UNK UKN, UNK

REACTIONS (2)
  - MYOCLONUS [None]
  - GRAND MAL CONVULSION [None]
